FAERS Safety Report 5730251-5 (Version None)
Quarter: 2008Q2

REPORT INFORMATION
  Report Type: 
  Country: None (occurrence: None)
  Receive Date: 20080505
  Receipt Date: 20080505
  Transmission Date: 20081010
  Serious: No
  Sender: FDA-Public Use
  Company Number: None

PATIENT
  Sex: Female
  Weight: 52.1637 kg

DRUGS (1)
  1. PYRIDOSTIGMINE 60 MG GLOBAL [Suspect]
     Indication: MYASTHENIA GRAVIS
     Dosage: 30 MG TWICE DAILY PO
     Route: 048
     Dates: start: 20011101, end: 20080502

REACTIONS (2)
  - DRUG EFFECT DECREASED [None]
  - PHARMACEUTICAL PRODUCT COMPLAINT [None]
